FAERS Safety Report 25633591 (Version 6)
Quarter: 2025Q4

REPORT INFORMATION
  Report Type: Report from Study
  Country: EU (occurrence: EU)
  Receive Date: 20250801
  Receipt Date: 20251229
  Transmission Date: 20260117
  Serious: Yes (Life-Threatening, Hospitalization, Other)
  Sender: PFIZER
  Company Number: EU-AUROBINDO-AUR-APL-2025-033081

PATIENT
  Age: 47 Year
  Sex: Male

DRUGS (119)
  1. DOXORUBICIN HYDROCHLORIDE [Suspect]
     Active Substance: DOXORUBICIN HYDROCHLORIDE
     Indication: Angioimmunoblastic T-cell lymphoma
     Dosage: CYCLE 1 DAY 1
     Route: 065
     Dates: start: 20250616, end: 20250616
  2. DOXORUBICIN HYDROCHLORIDE [Suspect]
     Active Substance: DOXORUBICIN HYDROCHLORIDE
     Indication: Peripheral T-cell lymphoma unspecified stage IV
     Dosage: C1D1, ON DAY 1 OF EACH 21 DAYS CYCLE
     Route: 065
     Dates: start: 20250616, end: 20250620
  3. DOXORUBICIN HYDROCHLORIDE [Suspect]
     Active Substance: DOXORUBICIN HYDROCHLORIDE
     Dosage: CYCLE 2 DAY 1
     Route: 065
     Dates: start: 20250707, end: 20250707
  4. DOXORUBICIN HYDROCHLORIDE [Suspect]
     Active Substance: DOXORUBICIN HYDROCHLORIDE
     Dosage: CYCLE 3 DAY 1
     Route: 065
     Dates: start: 20250728, end: 20250728
  5. DOXORUBICIN HYDROCHLORIDE [Suspect]
     Active Substance: DOXORUBICIN HYDROCHLORIDE
     Dosage: CYCLE 4 DAY 1
     Route: 065
     Dates: start: 20250818, end: 20250818
  6. DOXORUBICIN HYDROCHLORIDE [Suspect]
     Active Substance: DOXORUBICIN HYDROCHLORIDE
     Dosage: CYCLE 5 DAY 1
     Route: 065
     Dates: start: 20250908, end: 20250908
  7. DOXORUBICIN HYDROCHLORIDE [Suspect]
     Active Substance: DOXORUBICIN HYDROCHLORIDE
     Dosage: CYCLE 6 DAY 1
     Route: 065
     Dates: start: 20250929, end: 20250929
  8. VINCRISTINE [Suspect]
     Active Substance: VINCRISTINE
     Indication: Peripheral T-cell lymphoma unspecified stage IV
     Dosage: C1D1, ON DAY 1 OF EACH 21 DAYS CYCLE
     Route: 042
     Dates: start: 20250616, end: 20250620
  9. VINCRISTINE [Suspect]
     Active Substance: VINCRISTINE
     Dosage: CYCLE 5 DAY 1
     Route: 042
     Dates: start: 20250908, end: 20250908
  10. VINCRISTINE [Suspect]
     Active Substance: VINCRISTINE
     Dosage: CYCLE 6 DAY 1
     Route: 042
     Dates: start: 20250929, end: 20250929
  11. BELINOSTAT [Suspect]
     Active Substance: BELINOSTAT
     Indication: Angioimmunoblastic T-cell lymphoma
     Dosage: CYCLE 1 DAY 1
     Route: 065
     Dates: start: 20250616, end: 20250616
  12. BELINOSTAT [Suspect]
     Active Substance: BELINOSTAT
     Indication: Peripheral T-cell lymphoma unspecified stage IV
     Dosage: CYCLE 1 DAY 2
     Route: 065
     Dates: start: 20250617, end: 20250617
  13. BELINOSTAT [Suspect]
     Active Substance: BELINOSTAT
     Dosage: CYCLE 1 DAY 3
     Route: 065
     Dates: start: 20250618, end: 20250618
  14. BELINOSTAT [Suspect]
     Active Substance: BELINOSTAT
     Dosage: CYCLE 1 DAY 4
     Route: 065
     Dates: start: 20250619, end: 20250619
  15. BELINOSTAT [Suspect]
     Active Substance: BELINOSTAT
     Dosage: CYCLE 1 DAY 1 (C1D1))-ON DAY 1 TO DAY 5 OF EACH 21 DAYS CYCLE
     Route: 065
     Dates: start: 20250616, end: 20250620
  16. BELINOSTAT [Suspect]
     Active Substance: BELINOSTAT
     Dosage: CYCLE 1 DAY 5
     Route: 065
     Dates: start: 20250620, end: 20250620
  17. BELINOSTAT [Suspect]
     Active Substance: BELINOSTAT
     Dosage: CYCLE 2 DAY 1
     Route: 065
     Dates: start: 20250707, end: 20250707
  18. BELINOSTAT [Suspect]
     Active Substance: BELINOSTAT
     Dosage: CYCLE 2 DAY 2
     Route: 065
     Dates: start: 20250708, end: 20250708
  19. BELINOSTAT [Suspect]
     Active Substance: BELINOSTAT
     Dosage: CYCLE 2 DAY 3
     Route: 065
     Dates: start: 20250709, end: 20250709
  20. BELINOSTAT [Suspect]
     Active Substance: BELINOSTAT
     Dosage: CYCLE 2 DAY 4
     Route: 065
     Dates: start: 20250710, end: 20250710
  21. BELINOSTAT [Suspect]
     Active Substance: BELINOSTAT
     Dosage: CYCLE 2 DAY 5
     Route: 065
     Dates: start: 20250711, end: 20250711
  22. BELINOSTAT [Suspect]
     Active Substance: BELINOSTAT
     Dosage: CYCLE 3 DAY 1
     Route: 065
     Dates: start: 20250728, end: 20250728
  23. BELINOSTAT [Suspect]
     Active Substance: BELINOSTAT
     Dosage: CYCLE 3 DAY 2
     Route: 065
     Dates: start: 20250729, end: 20250729
  24. BELINOSTAT [Suspect]
     Active Substance: BELINOSTAT
     Dosage: CYCLE 3 DAY 3
     Route: 065
     Dates: start: 20250730, end: 20250730
  25. BELINOSTAT [Suspect]
     Active Substance: BELINOSTAT
     Dosage: CYCLE 3 DAY 4
     Route: 065
     Dates: start: 20250731, end: 20250731
  26. BELINOSTAT [Suspect]
     Active Substance: BELINOSTAT
     Dosage: CYCLE 3 DAY 5
     Route: 065
     Dates: start: 20250801, end: 20250801
  27. BELINOSTAT [Suspect]
     Active Substance: BELINOSTAT
     Dosage: CYCLE 4 DAY 1
     Route: 065
     Dates: start: 20250818, end: 20250818
  28. BELINOSTAT [Suspect]
     Active Substance: BELINOSTAT
     Dosage: CYCLE 4 DAY 2
     Route: 065
     Dates: start: 20250819, end: 20250819
  29. BELINOSTAT [Suspect]
     Active Substance: BELINOSTAT
     Dosage: CYCLE 4 DAY 3
     Route: 065
     Dates: start: 20250820, end: 20250820
  30. BELINOSTAT [Suspect]
     Active Substance: BELINOSTAT
     Dosage: CYCLE 4 DAY 4
     Route: 065
     Dates: start: 20250821, end: 20250821
  31. BELINOSTAT [Suspect]
     Active Substance: BELINOSTAT
     Dosage: CYCLE 4 DAY 5
     Route: 065
     Dates: start: 20250822, end: 20250822
  32. BELINOSTAT [Suspect]
     Active Substance: BELINOSTAT
     Dosage: CYCLE 5 DAY 1
     Route: 065
     Dates: start: 20250908, end: 20250908
  33. BELINOSTAT [Suspect]
     Active Substance: BELINOSTAT
     Dosage: CYCLE 5 DAY 2
     Route: 065
     Dates: start: 20250909, end: 20250909
  34. BELINOSTAT [Suspect]
     Active Substance: BELINOSTAT
     Dosage: CYCLE 5 DAY 3
     Route: 065
     Dates: start: 20250910, end: 20250910
  35. BELINOSTAT [Suspect]
     Active Substance: BELINOSTAT
     Dosage: CYCLE 5 DAY 4
     Route: 065
     Dates: start: 20250911, end: 20250911
  36. BELINOSTAT [Suspect]
     Active Substance: BELINOSTAT
     Dosage: CYCLE 5 DAY 5
     Route: 065
     Dates: start: 20250912, end: 20250912
  37. BELINOSTAT [Suspect]
     Active Substance: BELINOSTAT
     Dosage: CYCLE 6 DAY 1
     Route: 065
     Dates: start: 20250929, end: 20250929
  38. BELINOSTAT [Suspect]
     Active Substance: BELINOSTAT
     Dosage: CYCLE 6 DAY 2
     Route: 065
     Dates: start: 20250930, end: 20250930
  39. BELINOSTAT [Suspect]
     Active Substance: BELINOSTAT
     Dosage: CYCLE 6 DAY 3
     Route: 065
     Dates: start: 20251001, end: 20251001
  40. BELINOSTAT [Suspect]
     Active Substance: BELINOSTAT
     Dosage: CYCLE 6 DAY 4
     Route: 065
     Dates: start: 20251002, end: 20251002
  41. BELINOSTAT [Suspect]
     Active Substance: BELINOSTAT
     Dosage: CYCLE 6 DAY 5
     Route: 065
     Dates: start: 20251003, end: 20251003
  42. CYCLOPHOSPHAMIDE [Suspect]
     Active Substance: CYCLOPHOSPHAMIDE
     Indication: Angioimmunoblastic T-cell lymphoma
     Dosage: CYCLE 1 DAY 1
     Route: 065
     Dates: start: 20250616, end: 20250616
  43. CYCLOPHOSPHAMIDE [Suspect]
     Active Substance: CYCLOPHOSPHAMIDE
     Indication: Peripheral T-cell lymphoma unspecified stage IV
     Dosage: C1D1, ON DAY 1 OF EACH 21 DAYS CYCLE
     Route: 065
     Dates: start: 20250616, end: 20250620
  44. CYCLOPHOSPHAMIDE [Suspect]
     Active Substance: CYCLOPHOSPHAMIDE
     Dosage: CYCLE 2 DAY 1
     Route: 065
     Dates: start: 20250707, end: 20250707
  45. CYCLOPHOSPHAMIDE [Suspect]
     Active Substance: CYCLOPHOSPHAMIDE
     Dosage: CYCLE 3 DAY 1
     Route: 065
     Dates: start: 20250728, end: 20250728
  46. CYCLOPHOSPHAMIDE [Suspect]
     Active Substance: CYCLOPHOSPHAMIDE
     Dosage: CYCLE 4 DAY 1
     Route: 065
     Dates: start: 20250818, end: 20250818
  47. CYCLOPHOSPHAMIDE [Suspect]
     Active Substance: CYCLOPHOSPHAMIDE
     Dosage: CYCLE 5 DAY 1
     Route: 065
     Dates: start: 20250908, end: 20250908
  48. CYCLOPHOSPHAMIDE [Suspect]
     Active Substance: CYCLOPHOSPHAMIDE
     Dosage: CYCLE 6 DAY 1
     Route: 065
     Dates: start: 20250929, end: 20250929
  49. ONCOVIN [Suspect]
     Active Substance: VINCRISTINE SULFATE
     Indication: Angioimmunoblastic T-cell lymphoma
     Dosage: CYCLE 1 DAY 1
     Route: 065
     Dates: start: 20250616, end: 20250616
  50. ONCOVIN [Suspect]
     Active Substance: VINCRISTINE SULFATE
     Dosage: CYCLE 2 DAY 1
     Route: 065
     Dates: start: 20250707, end: 20250707
  51. ONCOVIN [Suspect]
     Active Substance: VINCRISTINE SULFATE
     Dosage: CYCLE 3 DAY 1
     Route: 065
     Dates: start: 20250728, end: 20250728
  52. ONCOVIN [Suspect]
     Active Substance: VINCRISTINE SULFATE
     Dosage: CYCLE 4 DAY 1
     Route: 065
     Dates: start: 20250818, end: 20250818
  53. ONCOVIN [Suspect]
     Active Substance: VINCRISTINE SULFATE
     Dosage: CYCLE 5 DAY 1
     Route: 065
     Dates: start: 20250908, end: 20250908
  54. ONCOVIN [Suspect]
     Active Substance: VINCRISTINE SULFATE
     Dosage: CYCLE 6 DAY 1
     Route: 065
     Dates: start: 20250929, end: 20250929
  55. PREDNISONE [Suspect]
     Active Substance: PREDNISONE
     Indication: Angioimmunoblastic T-cell lymphoma
     Dosage: CYCLE 1 DAY 1
     Route: 065
     Dates: start: 20250616
  56. PREDNISONE [Suspect]
     Active Substance: PREDNISONE
     Dosage: CYCLE 1 DAY 2
     Route: 065
     Dates: start: 20250617
  57. PREDNISONE [Suspect]
     Active Substance: PREDNISONE
     Dosage: CYCLE 1 DAY 3
     Route: 065
     Dates: start: 20250618
  58. PREDNISONE [Suspect]
     Active Substance: PREDNISONE
     Dosage: CYCLE 1 DAY 4
     Route: 065
     Dates: start: 20250619
  59. PREDNISONE [Suspect]
     Active Substance: PREDNISONE
     Dosage: CYCLE 1 DAY 5
     Route: 065
     Dates: start: 20250620
  60. PREDNISONE [Suspect]
     Active Substance: PREDNISONE
     Dosage: CYCLE 2 DAY 5
     Route: 065
     Dates: start: 20250707
  61. PREDNISONE [Suspect]
     Active Substance: PREDNISONE
     Dosage: CYCLE 2 DAY 2
     Route: 065
     Dates: start: 20250708
  62. PREDNISONE [Suspect]
     Active Substance: PREDNISONE
     Dosage: CYCLE 2 DAY 3
     Route: 065
     Dates: start: 20250709
  63. PREDNISONE [Suspect]
     Active Substance: PREDNISONE
     Dosage: CYCLE 2 DAY 4
     Route: 065
     Dates: start: 20250710
  64. PREDNISONE [Suspect]
     Active Substance: PREDNISONE
     Dosage: CYCLE 2 DAY 5
     Route: 065
     Dates: start: 20250711
  65. PREDNISONE [Suspect]
     Active Substance: PREDNISONE
     Dosage: CYCLE 3 DAY 1
     Route: 065
     Dates: start: 20250728
  66. PREDNISONE [Suspect]
     Active Substance: PREDNISONE
     Dosage: CYCLE 3 DAY 2
     Route: 065
     Dates: start: 20250729
  67. PREDNISONE [Suspect]
     Active Substance: PREDNISONE
     Dosage: CYCLE 3 DAY 3
     Route: 065
     Dates: start: 20250730
  68. PREDNISONE [Suspect]
     Active Substance: PREDNISONE
     Dosage: CYCLE 3 DAY 4
     Route: 065
     Dates: start: 20250731
  69. PREDNISONE [Suspect]
     Active Substance: PREDNISONE
     Dosage: CYCLE 3 DAY 5
     Route: 065
     Dates: start: 20250801
  70. PREDNISONE [Suspect]
     Active Substance: PREDNISONE
     Dosage: CYCLE 4 DAY 1
     Route: 065
     Dates: start: 20250818
  71. PREDNISONE [Suspect]
     Active Substance: PREDNISONE
     Dosage: CYCLE 4 DAY 2
     Route: 065
     Dates: start: 20250819
  72. PREDNISONE [Suspect]
     Active Substance: PREDNISONE
     Dosage: CYCLE 4 DAY 3
     Route: 065
     Dates: start: 20250820
  73. PREDNISONE [Suspect]
     Active Substance: PREDNISONE
     Dosage: CYCLE 4 DAY 4
     Route: 065
     Dates: start: 20250821
  74. PREDNISONE [Suspect]
     Active Substance: PREDNISONE
     Dosage: CYCLE 4 DAY 5
     Route: 065
     Dates: start: 20250822
  75. PREDNISONE [Suspect]
     Active Substance: PREDNISONE
     Dosage: CYCLE 5 DAY 1
     Route: 065
     Dates: start: 20250908, end: 20250908
  76. PREDNISONE [Suspect]
     Active Substance: PREDNISONE
     Dosage: CYCLE 5 DAY 2
     Route: 065
     Dates: start: 20250909, end: 20250909
  77. PREDNISONE [Suspect]
     Active Substance: PREDNISONE
     Dosage: CYCLE 5 DAY 3
     Route: 065
     Dates: start: 20250910, end: 20250910
  78. PREDNISONE [Suspect]
     Active Substance: PREDNISONE
     Dosage: CYCLE 5 DAY 4
     Route: 065
     Dates: start: 20250911, end: 20250911
  79. PREDNISONE [Suspect]
     Active Substance: PREDNISONE
     Dosage: CYCLE 5 DAY 5
     Route: 065
     Dates: start: 20250912, end: 20250912
  80. PREDNISONE [Suspect]
     Active Substance: PREDNISONE
     Dosage: CYCLE 6 DAY 1
     Route: 065
     Dates: start: 20250929, end: 20250929
  81. PREDNISONE [Suspect]
     Active Substance: PREDNISONE
     Dosage: CYCLE 6 DAY 2
     Route: 065
     Dates: start: 20250930, end: 20250930
  82. PREDNISONE [Suspect]
     Active Substance: PREDNISONE
     Dosage: CYCLE 6 DAY 3
     Route: 065
     Dates: start: 20251001, end: 20251001
  83. PREDNISONE [Suspect]
     Active Substance: PREDNISONE
     Dosage: CYCLE 6 DAY 4
     Route: 065
     Dates: start: 20251002
  84. PREDNISONE [Suspect]
     Active Substance: PREDNISONE
     Dosage: CYCLE 6 DAY 5
     Route: 065
     Dates: start: 20251003
  85. PREDNISONE [Concomitant]
     Active Substance: PREDNISONE
     Indication: Pyrexia
     Dosage: 2.5 MG, 1X/DAY
     Route: 048
     Dates: start: 2025, end: 20250529
  86. PREDNISONE [Concomitant]
     Active Substance: PREDNISONE
     Indication: Peripheral T-cell lymphoma unspecified stage IV
     Dosage: 2.5 MG, 1X/DAY
     Route: 048
     Dates: start: 20250602, end: 20250727
  87. PREDNISONE [Concomitant]
     Active Substance: PREDNISONE
     Dosage: 2.5 MG, 1X/DAY
     Route: 048
     Dates: start: 20250603, end: 20250615
  88. PREDNISONE [Concomitant]
     Active Substance: PREDNISONE
     Dosage: C1D1, ON DAY 1 TO DAY 5 OF EACH 21 DAYS CYCLE
     Route: 048
     Dates: start: 20250616
  89. SULFAMETHOXAZOLE\TRIMETHOPRIM [Concomitant]
     Active Substance: SULFAMETHOXAZOLE\TRIMETHOPRIM
     Indication: Infection prophylaxis
     Dosage: 1 DOSAGE FORM, 3 TIMES PER WEEK
     Route: 048
     Dates: start: 2025
  90. ACYCLOVIR [Concomitant]
     Active Substance: ACYCLOVIR
     Indication: Infection prophylaxis
     Dosage: 800 MG, 1X/DAY
     Route: 048
     Dates: start: 2025
  91. PANTOPRAZOLE [Concomitant]
     Active Substance: PANTOPRAZOLE
     Indication: Prophylaxis
     Dosage: 1 DF, 1X/DAY
     Route: 048
     Dates: start: 2025
  92. CALCIUM CARBONATE [Concomitant]
     Active Substance: CALCIUM CARBONATE
     Indication: Calcium deficiency
     Dosage: 1 DF, 1X/DAY
     Route: 048
     Dates: start: 2025
  93. RIVAROXABAN [Concomitant]
     Active Substance: RIVAROXABAN
     Indication: Thrombosis prophylaxis
     Dosage: 10 MG, 1X/DAY
     Route: 048
     Dates: start: 2025, end: 20250529
  94. RIVAROXABAN [Concomitant]
     Active Substance: RIVAROXABAN
     Dosage: 10 MG, 1X/DAY
     Route: 048
     Dates: start: 20250609, end: 20250617
  95. DEXAMETHASONE [Concomitant]
     Active Substance: DEXAMETHASONE
     Dosage: 20 MG, 1X/DAY
     Route: 048
     Dates: start: 20250529, end: 20250601
  96. FOLIC ACID [Concomitant]
     Active Substance: FOLIC ACID
     Indication: Prophylaxis
     Dosage: 2.5 MG, 1X/DAY
     Route: 048
     Dates: start: 20250604
  97. FOLIC ACID [Concomitant]
     Active Substance: FOLIC ACID
     Dosage: 5 MG, 1X/DAY
     Route: 048
     Dates: start: 20250604
  98. VITAMIN B12 [Concomitant]
     Active Substance: CYANOCOBALAMIN
     Indication: Prophylaxis
     Dosage: ONCE
     Route: 030
     Dates: start: 20250605, end: 20250605
  99. PRIMPERAN [Concomitant]
     Active Substance: METOCLOPRAMIDE HYDROCHLORIDE
     Indication: Prophylaxis of nausea and vomiting
     Dosage: 10 MG
     Route: 048
     Dates: start: 20250616
  100. ONDANSETRON [Concomitant]
     Active Substance: ONDANSETRON
     Indication: Nausea
     Dosage: 8 MG, ONCE
     Route: 042
     Dates: start: 20250619, end: 20250620
  101. ONDANSETRON [Concomitant]
     Active Substance: ONDANSETRON
     Indication: Prophylaxis
     Dosage: 8 MG, 3X/DAY
     Route: 048
     Dates: start: 20250616, end: 20250619
  102. MEROPENEM [Concomitant]
     Active Substance: MEROPENEM
     Indication: Pneumonia streptococcal
     Dosage: 2 MG, 3X/DAY
     Route: 048
     Dates: start: 20250619, end: 202506
  103. CEFTRIAXONE [Concomitant]
     Active Substance: CEFTRIAXONE
     Indication: Pneumonia streptococcal
     Dosage: 1 G, 2X/DAY
     Route: 042
     Dates: start: 20250628
  104. LEVOFLOXACIN [Concomitant]
     Active Substance: LEVOFLOXACIN
     Indication: Pneumonia streptococcal
     Dosage: 750 MG, 1X/DAY
     Route: 048
     Dates: start: 20250628
  105. FILGRASTIM [Concomitant]
     Active Substance: FILGRASTIM
     Indication: Prophylaxis
     Dosage: 0.5 MILLILITER, ONCE A DAY
     Route: 058
     Dates: start: 20250618, end: 20250619
  106. FILGRASTIM [Concomitant]
     Active Substance: FILGRASTIM
     Dosage: 0.5 MILLILITER, ONCE A DAY
     Route: 058
     Dates: start: 20250621, end: 20250621
  107. FILGRASTIM [Concomitant]
     Active Substance: FILGRASTIM
     Dosage: 0.5 MILLILITER, ONCE A DAY
     Route: 058
     Dates: start: 20250707, end: 20250707
  108. FILGRASTIM [Concomitant]
     Active Substance: FILGRASTIM
     Dosage: 480 MICROGRAM
     Route: 058
     Dates: start: 20250804, end: 20250808
  109. FILGRASTIM [Concomitant]
     Active Substance: FILGRASTIM
     Dosage: 0.5 ML, 1X/DAY
     Route: 058
     Dates: start: 20251010, end: 20251010
  110. HIBOR [Concomitant]
     Indication: Thrombosis prophylaxis
     Dosage: 5000 IU, 1X/DAY
     Route: 058
     Dates: start: 20250530, end: 20250608
  111. ESCITALOPRAM OXALATE [Concomitant]
     Active Substance: ESCITALOPRAM OXALATE
     Indication: Antidepressant therapy
     Dosage: 20 MG, 1X/DAY
     Route: 048
     Dates: start: 2025
  112. MESNA [Concomitant]
     Active Substance: MESNA
     Indication: Infection prophylaxis
     Dosage: 1 APPLICATION
     Route: 058
     Dates: start: 20250616, end: 20250616
  113. NYSTATIN [Concomitant]
     Active Substance: NYSTATIN
     Indication: Infection prophylaxis
     Dosage: 1 APPLICATION
     Route: 050
     Dates: start: 20250616
  114. AZITHROMYCIN DIHYDRATE [AZITHROMYCIN] [Concomitant]
     Indication: Infection prophylaxis
     Dosage: 250 MG, 1X/DAY
     Route: 048
     Dates: start: 20250707
  115. FILGRASTIM [Concomitant]
     Active Substance: FILGRASTIM
     Dosage: 0.5 MILLIGRAM, ONCE A DAY
     Route: 058
     Dates: start: 20250623, end: 20250625
  116. FILGRASTIM [Concomitant]
     Active Substance: FILGRASTIM
     Dosage: 0.5 MILLIGRAM, ONCE A DAY
     Route: 058
     Dates: start: 20250718, end: 20250720
  117. AKYNZEO (NETUPITANT\PALONOSETRON HYDROCHLORIDE) [Concomitant]
     Active Substance: NETUPITANT\PALONOSETRON HYDROCHLORIDE
     Indication: Prophylaxis of nausea and vomiting
     Dosage: 1 DF, DAILY
     Dates: start: 20250929, end: 20251003
  118. PIPERACILLIN SODIUM\TAZOBACTAM SODIUM [Concomitant]
     Active Substance: PIPERACILLIN SODIUM\TAZOBACTAM SODIUM
     Indication: Rhinovirus infection
     Dosage: 1 DF, 3X/DAY
     Route: 042
     Dates: start: 20251010, end: 20251012
  119. AMOXICILLIN [Concomitant]
     Active Substance: AMOXICILLIN
     Indication: Rhinovirus infection
     Dosage: 1000 MG, 3X/DAY
     Route: 048
     Dates: start: 20251012, end: 20251019

REACTIONS (13)
  - Neutropenia [Recovered/Resolved]
  - Pneumonia streptococcal [Recovered/Resolved]
  - Pneumococcal bacteraemia [Recovered/Resolved]
  - Rhinovirus infection [Recovered/Resolved]
  - Adrenal suppression [Recovering/Resolving]
  - Neuropathy peripheral [Recovering/Resolving]
  - Febrile neutropenia [Recovered/Resolved]
  - Hypothalamic pituitary adrenal axis suppression [Recovering/Resolving]
  - Asthenia [Not Recovered/Not Resolved]
  - Nausea [Recovered/Resolved]
  - Vomiting [Recovered/Resolved]
  - Pain in jaw [Recovered/Resolved]
  - Hypertriglyceridaemia [Recovering/Resolving]

NARRATIVE: CASE EVENT DATE: 20250529
